FAERS Safety Report 5714380-8 (Version None)
Quarter: 2008Q2

REPORT INFORMATION
  Report Type: 
  Country: None (occurrence: None)
  Receive Date: 20080423
  Receipt Date: 20080415
  Transmission Date: 20081010
  Serious: Yes (Hospitalization)
  Sender: FDA-Public Use
  Company Number: PHHO2008GB04846

PATIENT

DRUGS (1)
  1. TEGASEROD [Suspect]
     Indication: IRRITABLE BOWEL SYNDROME

REACTIONS (2)
  - COLPOSUSPENSION [None]
  - CONCOMITANT DISEASE PROGRESSION [None]
